FAERS Safety Report 10063570 (Version 3)
Quarter: 2015Q3

REPORT INFORMATION
  Report Type: Spontaneous
  Country: US (occurrence: US)
  Receive Date: 20140407
  Receipt Date: 20150722
  Transmission Date: 20151125
  Serious: Yes (Other)
  Sender: FDA-Public Use
  Company Number: US-LUNDBECK-DKLU1098999

PATIENT
  Age: 1 Year
  Sex: Female

DRUGS (3)
  1. PHENOBARBITAL. [Concomitant]
     Active Substance: PHENOBARBITAL
     Indication: PRODUCT USED FOR UNKNOWN INDICATION
     Route: 065
  2. ZONEGRAN [Concomitant]
     Active Substance: ZONISAMIDE
     Indication: PRODUCT USED FOR UNKNOWN INDICATION
     Route: 065
  3. SABRIL [Suspect]
     Active Substance: VIGABATRIN
     Indication: PRODUCT USED FOR UNKNOWN INDICATION
     Route: 065
     Dates: start: 200908

REACTIONS (6)
  - Blindness [Unknown]
  - Nystagmus [Unknown]
  - Neurotoxicity [None]
  - Blindness cortical [Unknown]
  - Retinal toxicity [Unknown]
  - Optic atrophy [Unknown]

NARRATIVE: CASE EVENT DATE: 20100517
